FAERS Safety Report 22224567 (Version 1)
Quarter: 2023Q2

REPORT INFORMATION
  Report Type: Spontaneous
  Country: US (occurrence: US)
  Receive Date: 20230418
  Receipt Date: 20230418
  Transmission Date: 20230722
  Serious: No
  Sender: FDA-Public Use
  Company Number: US-BRACCO-2023US01313

PATIENT
  Sex: Female

DRUGS (1)
  1. NEULUMEX [Suspect]
     Active Substance: BARIUM SULFATE
     Indication: Computerised tomogram intestine
     Dosage: SINGLE, 3 BOTTLES
     Route: 048
     Dates: start: 2022, end: 2022

REACTIONS (2)
  - Drug ineffective [Unknown]
  - No adverse event [Unknown]

NARRATIVE: CASE EVENT DATE: 20220101
